FAERS Safety Report 12645054 (Version 1)
Quarter: 2016Q3

REPORT INFORMATION
  Report Type: Spontaneous
  Country: US (occurrence: US)
  Receive Date: 20160811
  Receipt Date: 20160811
  Transmission Date: 20161109
  Serious: No
  Sender: FDA-Public Use
  Company Number: US-ENDO PHARMACEUTICALS INC.-2016-002157

PATIENT
  Sex: Female

DRUGS (1)
  1. PREDNISONE TABLETS [Suspect]
     Active Substance: PREDNISONE
     Indication: SYNOVITIS
     Route: 065

REACTIONS (1)
  - Drug ineffective [Unknown]

NARRATIVE: CASE EVENT DATE: 2014
